FAERS Safety Report 21149032 (Version 4)
Quarter: 2022Q3

REPORT INFORMATION
  Report Type: Spontaneous
  Country: MX (occurrence: MX)
  Receive Date: 20220729
  Receipt Date: 20220919
  Transmission Date: 20221027
  Serious: Yes (Death, Other)
  Sender: FDA-Public Use
  Company Number: MX-ALXN-A202208892

PATIENT
  Age: 13 Year
  Sex: Female
  Weight: 64 kg

DRUGS (1)
  1. ULTOMIRIS [Suspect]
     Active Substance: RAVULIZUMAB-CWVZ
     Indication: Paroxysmal nocturnal haemoglobinuria
     Dosage: UNK,EVERY 8 WEEKS
     Route: 042
     Dates: start: 20220625, end: 20220712

REACTIONS (2)
  - Thrombocytopenia [Fatal]
  - Haemorrhage intracranial [Unknown]

NARRATIVE: CASE EVENT DATE: 20220723
